FAERS Safety Report 17258919 (Version 1)
Quarter: 2020Q1

REPORT INFORMATION
  Report Type: Spontaneous
  Country: US (occurrence: US)
  Receive Date: 20200110
  Receipt Date: 20200110
  Transmission Date: 20200409
  Serious: Yes (Other)
  Sender: FDA-Public Use
  Company Number: US-LANNETT COMPANY, INC.-US-2019LAN001106

PATIENT
  Sex: Female

DRUGS (1)
  1. ZAROXOLYN [Suspect]
     Active Substance: METOLAZONE
     Indication: FLUID RETENTION
     Dosage: UNK

REACTIONS (1)
  - Hypotension [Unknown]
